FAERS Safety Report 4418164-2 (Version None)
Quarter: 2004Q3

REPORT INFORMATION
  Report Type: 
  Country: None (occurrence: None)
  Receive Date: 20040809
  Receipt Date: 20031217
  Transmission Date: 20050211
  Serious: No
  Sender: FDA-Public Use
  Company Number: US-GLAXOSMITHKLINE-A0443478A

PATIENT
  Age: 71 Year
  Sex: Male

DRUGS (3)
  1. PAXIL [Suspect]
     Indication: DEPRESSION
     Dosage: 12.5MG PER DAY
     Route: 048
     Dates: start: 20030901, end: 20031217
  2. PROSCAR [Concomitant]
  3. HYTRIN [Concomitant]

REACTIONS (4)
  - DRUG INEFFECTIVE [None]
  - EJACULATION DISORDER [None]
  - PRIAPISM [None]
  - PROSTATIC SPECIFIC ANTIGEN INCREASED [None]
